FAERS Safety Report 21085726 (Version 1)
Quarter: 2022Q3

REPORT INFORMATION
  Report Type: Spontaneous
  Country: US (occurrence: US)
  Receive Date: 20220715
  Receipt Date: 20220715
  Transmission Date: 20221026
  Serious: Yes (Other)
  Sender: FDA-Public Use
  Company Number: US-drreddys-LIT/USA/22/0152169

PATIENT
  Age: 21 Year
  Sex: Male

DRUGS (3)
  1. TACROLIMUS [Interacting]
     Active Substance: TACROLIMUS
     Indication: Immunosuppressant drug therapy
  2. ELEXACAFTOR\IVACAFTOR\TEZACAFTOR [Suspect]
     Active Substance: ELEXACAFTOR\IVACAFTOR\TEZACAFTOR
     Indication: Immunosuppressant drug therapy
     Dosage: 200/150/100MG IN THE MORNING
     Dates: start: 201912
  3. IVACAFTOR [Suspect]
     Active Substance: IVACAFTOR
     Indication: Immunosuppressant drug therapy
     Dosage: 150MG IN THE EVENING
     Dates: start: 201912

REACTIONS (5)
  - Drug interaction [Unknown]
  - Drug level changed [Recovering/Resolving]
  - Fatigue [Unknown]
  - Constipation [Unknown]
  - Diarrhoea [Unknown]
